FAERS Safety Report 19356861 (Version 8)
Quarter: 2021Q4

REPORT INFORMATION
  Report Type: Spontaneous
  Country: IE (occurrence: GB)
  Receive Date: 20210601
  Receipt Date: 20211214
  Transmission Date: 20220304
  Serious: Yes (Disabling)
  Sender: FDA-Public Use
  Company Number: None

PATIENT
  Age: 24 Year
  Sex: Male

DRUGS (7)
  1. RISPERDAL [Suspect]
     Active Substance: RISPERIDONE
     Indication: Product used for unknown indication
     Route: 048
  2. TEMAZEPAM [Concomitant]
     Active Substance: TEMAZEPAM
     Indication: Poor quality sleep
     Dosage: 10 MG, QD
     Dates: start: 201507, end: 201509
  3. CITALOPRAM [Concomitant]
     Active Substance: CITALOPRAM HYDROBROMIDE
     Indication: Product used for unknown indication
     Dosage: 10 MG (INITIALLY)
     Dates: start: 201507
  4. MIRTAZAPINE [Concomitant]
     Active Substance: MIRTAZAPINE
     Indication: Antidepressant therapy
     Dosage: 7.5 MG-UPTITRATED TO 45MG DAILY THEN REDUCED DOWN TO STOP
     Dates: start: 2014, end: 2015
  5. SERTRALINE [Concomitant]
     Active Substance: SERTRALINE HYDROCHLORIDE
     Indication: Antidepressant therapy
     Dosage: 50MG INITALLY THEN 100MG
     Dates: start: 2014
  6. CIPRALEX [Concomitant]
     Active Substance: ESCITALOPRAM OXALATE
     Indication: Antidepressant therapy
     Dates: start: 201507, end: 201509
  7. TRAZODONE [Concomitant]
     Active Substance: TRAZODONE HYDROCHLORIDE
     Indication: Antidepressant therapy
     Dosage: 50 MG (INITIALLY INCREASED TO 100 MG THEN REDUCED TO 50 MG BEFORE STOPPING)
     Route: 048
     Dates: start: 2015, end: 201507

REACTIONS (3)
  - Physical disability [Unknown]
  - Sedation [Unknown]
  - Somnolence [Unknown]
